FAERS Safety Report 6468508-5 (Version None)
Quarter: 2009Q4

REPORT INFORMATION
  Report Type: 
  Country: None (occurrence: None)
  Receive Date: 20091203
  Receipt Date: 20091125
  Transmission Date: 20100525
  Serious: Yes (Hospitalization)
  Sender: FDA-Public Use
  Company Number: IT-ASTRAZENECA-2009SE29239

PATIENT
  Age: 46 Year
  Sex: Male

DRUGS (5)
  1. PROVISACOR [Suspect]
     Indication: DYSLIPIDAEMIA
     Route: 048
  2. FUROSEMIDE [Concomitant]
     Route: 048
  3. ASPIRIN [Concomitant]
     Route: 048
  4. LUVION [Concomitant]
     Route: 048
  5. DILATREND [Concomitant]
     Route: 048

REACTIONS (3)
  - MYOPATHY [None]
  - PRESYNCOPE [None]
  - RHABDOMYOLYSIS [None]
